FAERS Safety Report 9592936 (Version 1)
Quarter: 2013Q3

REPORT INFORMATION
  Report Type: Spontaneous
  Country: US (occurrence: None)
  Receive Date: 20130930
  Receipt Date: 20130930
  Transmission Date: 20140515
  Serious: Yes (Other)
  Sender: FDA-Public Use
  Company Number: 1000046876

PATIENT
  Age: 35 Year
  Sex: Female

DRUGS (2)
  1. LINZESS [Suspect]
     Dosage: 145,CG (145MCG 1 IN 1 D)
  2. LINZESS [Suspect]

REACTIONS (1)
  - Fatigue [None]
